FAERS Safety Report 13124042 (Version 1)
Quarter: 2017Q1

REPORT INFORMATION
  Report Type: Spontaneous
  Country: CZ (occurrence: CZ)
  Receive Date: 20170118
  Receipt Date: 20170118
  Transmission Date: 20170428
  Serious: Yes (Other)
  Sender: FDA-Public Use
  Company Number: CZ-ACCORD-047482

PATIENT
  Age: 54 Year
  Sex: Male

DRUGS (5)
  1. SERTRALINE [Suspect]
     Active Substance: SERTRALINE HYDROCHLORIDE
     Indication: DEPRESSION
  2. ZOLPIDEM [Concomitant]
     Active Substance: ZOLPIDEM\ZOLPIDEM TARTRATE
     Indication: INSOMNIA
  3. ESCITALOPRAM [Suspect]
     Active Substance: ESCITALOPRAM OXALATE
     Indication: DEPRESSIVE SYMPTOM
  4. AGOMELATINE [Concomitant]
     Active Substance: AGOMELATINE
     Indication: DEPRESSION
  5. WARFARIN [Concomitant]
     Active Substance: WARFARIN

REACTIONS (2)
  - Sexual dysfunction [Unknown]
  - Drug ineffective [Unknown]
